FAERS Safety Report 23192729 (Version 5)
Quarter: 2024Q2

REPORT INFORMATION
  Report Type: Spontaneous
  Country: US (occurrence: US)
  Receive Date: 20231116
  Receipt Date: 20240508
  Transmission Date: 20240716
  Serious: Yes (Disabling)
  Sender: FDA-Public Use
  Company Number: US-SA-SAC20231110001115

PATIENT
  Age: 39 Year
  Sex: Female

DRUGS (1)
  1. KEVZARA [Suspect]
     Active Substance: SARILUMAB
     Indication: Rheumatoid arthritis
     Dosage: 200 MG, QOW
     Route: 058
     Dates: start: 202308

REACTIONS (6)
  - Loss of personal independence in daily activities [Unknown]
  - Pain [Unknown]
  - Malaise [Unknown]
  - Joint swelling [Unknown]
  - Condition aggravated [Unknown]
  - Arthralgia [Unknown]

NARRATIVE: CASE EVENT DATE: 20230101
